FAERS Safety Report 21238188 (Version 1)
Quarter: 2022Q3

REPORT INFORMATION
  Report Type: Spontaneous
  Country: US (occurrence: US)
  Receive Date: 20220822
  Receipt Date: 20220822
  Transmission Date: 20221027
  Serious: Yes (Other)
  Sender: FDA-Public Use
  Company Number: US-COLGATE PALMOLIVE COMPANY-20220801480

PATIENT
  Sex: Female

DRUGS (1)
  1. PREVIDENT 5000 BOOSTER [Suspect]
     Active Substance: SODIUM FLUORIDE
     Dosage: UNKNOWN DOSE

REACTIONS (1)
  - Tooth loss [Unknown]
